FAERS Safety Report 7521451-2 (Version None)
Quarter: 2011Q2

REPORT INFORMATION
  Report Type: 
  Country: None (occurrence: None)
  Receive Date: 20110603
  Receipt Date: 20110216
  Transmission Date: 20111010
  Serious: Yes (Death, Hospitalization, Other)
  Sender: FDA-Public Use
  Company Number: JP-BAYER-200912045BYL

PATIENT
  Age: 58 Year
  Sex: Male
  Weight: 66.4 kg

DRUGS (11)
  1. NEXAVAR [Suspect]
     Route: 048
     Dates: start: 20090702, end: 20090820
  2. NEXAVAR [Suspect]
     Dosage: 400 MG (DAILY DOSE), , ORAL
     Route: 048
     Dates: start: 20090820, end: 20091111
  3. NEXAVAR [Suspect]
     Route: 048
     Dates: start: 20091112, end: 20100106
  4. PONTAL [Concomitant]
     Indication: TUMOUR ASSOCIATED FEVER
     Dosage: 250 MG (DAILY DOSE), , ORAL
     Route: 048
     Dates: start: 20090625, end: 20090625
  5. LIVACT [Concomitant]
     Indication: HEPATIC NEOPLASM MALIGNANT
     Dosage: 12.45 G (DAILY DOSE), , ORAL
     Route: 048
     Dates: start: 20100318
  6. ALDACTONE [Concomitant]
     Indication: HEPATIC NEOPLASM MALIGNANT
     Dosage: 50 MG (DAILY DOSE), , ORAL
     Route: 048
     Dates: start: 20100318
  7. NAIXAN [Concomitant]
     Indication: TUMOUR ASSOCIATED FEVER
     Dosage: 300 MG (DAILY DOSE), , ORAL
     Route: 048
     Dates: start: 20090917
  8. LASIX [Concomitant]
     Indication: HEPATIC NEOPLASM MALIGNANT
     Dosage: 20 MG (DAILY DOSE), , ORAL
     Route: 048
     Dates: start: 20100318
  9. ENALAPRIL MALEATE [Concomitant]
     Dosage: SINCE BEFORE ADMINISTRATION
     Route: 048
  10. NEXAVAR [Suspect]
     Dosage: 400 MG (DAILY DOSE), , ORAL
     Route: 048
     Dates: start: 20100107, end: 20100614
  11. NEXAVAR [Suspect]
     Indication: HEPATIC NEOPLASM MALIGNANT
     Route: 048
     Dates: start: 20090613, end: 20090618

REACTIONS (7)
  - HEPATIC FUNCTION ABNORMAL [None]
  - PALMAR-PLANTAR ERYTHRODYSAESTHESIA SYNDROME [None]
  - PYREXIA [None]
  - ERYTHEMA MULTIFORME [None]
  - ASPARTATE AMINOTRANSFERASE INCREASED [None]
  - HEPATIC NEOPLASM MALIGNANT [None]
  - INJURY [None]
